FAERS Safety Report 4586611-1 (Version None)
Quarter: 2005Q1

REPORT INFORMATION
  Report Type: 
  Country: None (occurrence: None)
  Receive Date: 20050218
  Receipt Date: 20040707
  Transmission Date: 20050727
  Serious: Yes (Other)
  Sender: FDA-Public Use
  Company Number: US-BRISTOL-MYERS SQUIBB COMPANY-12634002

PATIENT
  Age: 74 Year
  Sex: Male

DRUGS (1)
  1. TAXOL [Suspect]
     Route: 042
     Dates: start: 20040706, end: 20040706

REACTIONS (1)
  - HYPERSENSITIVITY [None]
